FAERS Safety Report 4550042-0 (Version None)
Quarter: 2005Q1

REPORT INFORMATION
  Report Type: 
  Country: None (occurrence: None)
  Receive Date: 20050112
  Receipt Date: 20050106
  Transmission Date: 20050727
  Serious: Yes (Death, Hospitalization)
  Sender: FDA-Public Use
  Company Number: 200510077FR

PATIENT
  Age: 62 Year
  Sex: Male
  Weight: 56 kg

DRUGS (10)
  1. TRAMADOL HCL [Suspect]
     Route: 048
     Dates: start: 20041021
  2. CORTANCYL [Suspect]
     Route: 048
     Dates: start: 20041021
  3. LOVENOX [Suspect]
  4. SECTRAL [Suspect]
  5. MOPRAL [Suspect]
     Route: 048
     Dates: start: 20041021
  6. ZYRTEC [Suspect]
     Route: 048
     Dates: start: 20041021
  7. PROGRAF [Suspect]
     Route: 048
     Dates: start: 20041021
  8. PRIMPERAN INJ [Suspect]
  9. ATARAX [Suspect]
  10. AMLODIPINE [Suspect]

REACTIONS (19)
  - ABNORMAL SENSATION IN EYE [None]
  - CHOLESTASIS [None]
  - COMA [None]
  - CONFUSIONAL STATE [None]
  - CONVULSION [None]
  - DRUG TOXICITY [None]
  - EXTRAPYRAMIDAL DISORDER [None]
  - EYE DISORDER [None]
  - FEELING ABNORMAL [None]
  - KLEBSIELLA INFECTION [None]
  - METABOLIC ENCEPHALOPATHY [None]
  - NERVOUS SYSTEM DISORDER [None]
  - NOSOCOMIAL INFECTION [None]
  - PHOTOPSIA [None]
  - RENAL FAILURE CHRONIC [None]
  - RETINOPATHY HYPERTENSIVE [None]
  - SEPSIS [None]
  - VISUAL DISTURBANCE [None]
  - VITREOUS FLOATERS [None]
